FAERS Safety Report 15370578 (Version 1)
Quarter: 2018Q3

REPORT INFORMATION
  Report Type: Spontaneous
  Country: US (occurrence: US)
  Receive Date: 20180905
  Receipt Date: 20180905
  Transmission Date: 20181010
  Serious: Yes (Life-Threatening, Hospitalization)
  Sender: FDA-Public Use
  Company Number: None

PATIENT
  Age: 42 Year
  Sex: Female
  Weight: 47.7 kg

DRUGS (1)
  1. CLINDAMYCIN 300 MG CAPSULES [Suspect]
     Active Substance: CLINDAMYCIN HYDROCHLORIDE
     Indication: INFECTION PROPHYLAXIS
     Dosage: ?          QUANTITY:3 DF DOSAGE FORM;?
     Route: 048
     Dates: start: 20180508, end: 20180509

REACTIONS (8)
  - Acute kidney injury [None]
  - Malaise [None]
  - Asthenia [None]
  - Diarrhoea [None]
  - Vomiting [None]
  - Clostridium difficile infection [None]
  - Fatigue [None]
  - Dehydration [None]

NARRATIVE: CASE EVENT DATE: 20180529
